FAERS Safety Report 8885708 (Version 1)
Quarter: 2012Q4

REPORT INFORMATION
  Report Type: 
  Country: BR (occurrence: BR)
  Receive Date: 20121102
  Receipt Date: 20121102
  Transmission Date: 20130627
  Serious: Yes (Death, Other)
  Sender: FDA-Public Use
  Company Number: BR-PFIZER INC-2012272712

PATIENT
  Sex: Male

DRUGS (1)
  1. CITALOR [Suspect]
     Indication: HIGH CHOLESTEROL
     Dosage: 20 mg, 1x/day
     Route: 048

REACTIONS (4)
  - Diabetes mellitus [Fatal]
  - Infarction [Fatal]
  - Infarction [Unknown]
  - Renal disorder [Not Recovered/Not Resolved]
